FAERS Safety Report 5566820-5 (Version None)
Quarter: 2007Q4

REPORT INFORMATION
  Report Type: 
  Country: None (occurrence: None)
  Receive Date: 20071219
  Receipt Date: 20071217
  Transmission Date: 20080405
  Serious: Yes (Other)
  Sender: FDA-Public Use
  Company Number: B0500079A

PATIENT
  Age: 40 Year
  Sex: Female

DRUGS (2)
  1. LAMOTRIGINE [Suspect]
     Dosage: 150MG PER DAY
     Route: 048
     Dates: start: 20061010, end: 20071015
  2. SERTRALINE [Concomitant]
     Route: 048
     Dates: start: 20030101

REACTIONS (5)
  - ARTHRALGIA [None]
  - LYMPHADENOPATHY [None]
  - MALAISE [None]
  - MOBILITY DECREASED [None]
  - MYALGIA [None]
